FAERS Safety Report 5316680-2 (Version None)
Quarter: 2007Q2

REPORT INFORMATION
  Report Type: 
  Country: None (occurrence: None)
  Receive Date: 20070504
  Receipt Date: 20070425
  Transmission Date: 20071010
  Serious: Yes (Death)
  Sender: FDA-Public Use
  Company Number: AT-BRISTOL-MYERS SQUIBB COMPANY-13761234

PATIENT
  Age: 65 Year
  Sex: Male
  Weight: 70 kg

DRUGS (6)
  1. MAXIPIME [Suspect]
     Indication: RESPIRATORY TRACT INFECTION
     Dates: start: 20011221, end: 20011224
  2. MAXIPIME [Suspect]
     Indication: WOUND
     Dates: start: 20011221, end: 20011224
  3. MAXIPIME [Suspect]
     Indication: SEPSIS
     Dates: start: 20011221, end: 20011224
  4. CIPROFLOXACIN HYDROCHLORIDE [Suspect]
     Indication: RESPIRATORY TRACT INFECTION
     Dates: start: 20011221, end: 20011224
  5. CIPROFLOXACIN HYDROCHLORIDE [Suspect]
     Indication: SEPSIS
     Dates: start: 20011221, end: 20011224
  6. CIPROFLOXACIN HYDROCHLORIDE [Suspect]
     Indication: WOUND
     Dates: start: 20011221, end: 20011224

REACTIONS (1)
  - DEATH [None]
